FAERS Safety Report 4585258-0 (Version None)
Quarter: 2005Q1

REPORT INFORMATION
  Report Type: 
  Country: None (occurrence: None)
  Receive Date: 20050217
  Receipt Date: 20050131
  Transmission Date: 20050727
  Serious: Yes (Other)
  Sender: FDA-Public Use
  Company Number: US-GLAXOSMITHKLINE-A0543066A

PATIENT
  Age: 57 Year
  Sex: Male

DRUGS (2)
  1. WELLBUTRIN [Suspect]
     Indication: ILL-DEFINED DISORDER
     Dosage: 150MG UNKNOWN
     Route: 048
     Dates: start: 20040820, end: 20041108
  2. NEURONTIN [Concomitant]
     Indication: NEUROPATHIC PAIN

REACTIONS (1)
  - CONVULSION [None]
